FAERS Safety Report 7969838-8 (Version None)
Quarter: 2011Q4

REPORT INFORMATION
  Report Type: 
  Country: None (occurrence: None)
  Receive Date: 20111122
  Receipt Date: 20110824
  Transmission Date: 20120403
  Serious: No
  Sender: FDA-Public Use
  Company Number: PHEH2011US02577

PATIENT
  Age: 52 Year
  Weight: 54 kg

DRUGS (2)
  1. FAMPRIDINE (FAMPRODOME) [Concomitant]
  2. GILENYA [Suspect]
     Indication: PROGRESSIVE RELAPSING MULTIPLE SCLEROSIS
     Dosage: 0.5 MG, DAILY, ORAL
     Route: 048
     Dates: start: 20110318

REACTIONS (2)
  - DEPRESSED MOOD [None]
  - SOMNOLENCE [None]
